FAERS Safety Report 19458858 (Version 1)
Quarter: 2021Q2

REPORT INFORMATION
  Report Type: Report from Study
  Country: FR (occurrence: FR)
  Receive Date: 20210624
  Receipt Date: 20210624
  Transmission Date: 20210717
  Serious: Yes (Hospitalization)
  Sender: FDA-Public Use
  Company Number: FR-ORPHANEU-2019009867

PATIENT

DRUGS (3)
  1. DEROXAT [Concomitant]
     Active Substance: PAROXETINE HYDROCHLORIDE
     Indication: DEPRESSION
     Dosage: UNK
     Route: 048
     Dates: start: 20150909
  2. LCI699 LCI699+FCTAB [Suspect]
     Active Substance: OSILODROSTAT
     Indication: CUSHING^S SYNDROME
     Dosage: 1 MILLIGRAM, QD
     Route: 048
     Dates: start: 20190925, end: 20191004
  3. UVEDOSE [Concomitant]
     Active Substance: CHOLECALCIFEROL
     Indication: GENERAL PHYSICAL CONDITION
     Dosage: UNK
     Route: 048
     Dates: start: 20190925

REACTIONS (2)
  - Glucocorticoid deficiency [Recovered/Resolved]
  - Adrenal insufficiency [Recovered/Resolved]

NARRATIVE: CASE EVENT DATE: 20191004
